FAERS Safety Report 15264349 (Version 1)
Quarter: 2018Q3

REPORT INFORMATION
  Report Type: Spontaneous
  Country: US (occurrence: US)
  Receive Date: 20180722
  Receipt Date: 20180722
  Transmission Date: 20181010
  Serious: No
  Sender: FDA-Public Use
  Company Number: None

PATIENT
  Age: 49 Year
  Sex: Female
  Weight: 88.2 kg

DRUGS (1)
  1. METFORMIN [Suspect]
     Active Substance: METFORMIN HYDROCHLORIDE
     Indication: TYPE 2 DIABETES MELLITUS
     Dosage: ?          QUANTITY:1 DF DOSAGE FORM;?
     Route: 048
     Dates: start: 20180717, end: 20180717

REACTIONS (8)
  - Diarrhoea [None]
  - Paraesthesia oral [None]
  - Impaired driving ability [None]
  - Palpitations [None]
  - Dyspnoea [None]
  - Feeling hot [None]
  - Back pain [None]
  - Feeling abnormal [None]

NARRATIVE: CASE EVENT DATE: 20180717
